FAERS Safety Report 5212069-5 (Version None)
Quarter: 2007Q1

REPORT INFORMATION
  Report Type: 
  Country: None (occurrence: None)
  Receive Date: 20070118
  Receipt Date: 20070108
  Transmission Date: 20070707
  Serious: Yes (Disabling, Other)
  Sender: FDA-Public Use
  Company Number: PHNR2006AU00791

PATIENT
  Age: 58 Year
  Sex: Female

DRUGS (5)
  1. ZOMETA [Suspect]
     Indication: BREAST CANCER METASTATIC
     Dosage: 4 MG, UNK
     Dates: start: 20041201, end: 20050606
  2. CHEMOTHERAPEUTICS,OTHER [Concomitant]
  3. TAXOL [Concomitant]
     Dosage: UNK, TIW
  4. GEMCITABINE [Concomitant]
     Indication: BREAST CANCER
     Dosage: D1 AND D8 EVERY 3 WEEK
     Dates: start: 20060601
  5. PAMIDRONATE DISODIUM [Concomitant]
     Dosage: 90MG
     Dates: start: 20061213

REACTIONS (5)
  - BONE SCAN ABNORMAL [None]
  - DYSAESTHESIA [None]
  - IMPAIRED HEALING [None]
  - OSTEONECROSIS [None]
  - PAIN IN JAW [None]
